FAERS Safety Report 21380645 (Version 3)
Quarter: 2022Q4

REPORT INFORMATION
  Report Type: Report from Study
  Country: US (occurrence: US)
  Receive Date: 20220927
  Receipt Date: 20221025
  Transmission Date: 20230113
  Serious: Yes (Other)
  Sender: FDA-Public Use
  Company Number: US-NOVARTISTESTPH-NVSC2022US218161

PATIENT
  Sex: Female

DRUGS (1)
  1. KISQALI [Suspect]
     Active Substance: RIBOCICLIB
     Indication: Breast cancer metastatic
     Dosage: 400 MG, QD
     Route: 048
     Dates: start: 202207

REACTIONS (6)
  - Neutropenia [Recovering/Resolving]
  - Insomnia [Unknown]
  - Abnormal dreams [Unknown]
  - Alopecia [Recovering/Resolving]
  - Nausea [Recovering/Resolving]
  - Peripheral swelling [Recovering/Resolving]
